FAERS Safety Report 5904943-9 (Version None)
Quarter: 2008Q3

REPORT INFORMATION
  Report Type: 
  Country: None (occurrence: None)
  Receive Date: 20080909
  Receipt Date: 20080422
  Transmission Date: 20090109
  Serious: Yes (Death)
  Sender: FDA-Public Use
  Company Number: 163-20785-08031845

PATIENT
  Age: 82 Year
  Sex: Male

DRUGS (2)
  1. THALOMID [Suspect]
     Indication: METASTASIS
     Dosage: 200 MG, ORAL ; 300 MG, ORAL
     Route: 048
     Dates: start: 20070921
  2. THALOMID [Suspect]
     Indication: METASTASIS
     Dosage: 200 MG, ORAL ; 300 MG, ORAL
     Route: 048
     Dates: start: 20071015

REACTIONS (1)
  - DISEASE PROGRESSION [None]
